FAERS Safety Report 7491963-9 (Version None)
Quarter: 2011Q2

REPORT INFORMATION
  Report Type: 
  Country: None (occurrence: None)
  Receive Date: 20110511
  Receipt Date: 20110503
  Transmission Date: 20111010
  Serious: Yes (Hospitalization, Other)
  Sender: FDA-Public Use
  Company Number: WAES 1105USA00444

PATIENT
  Age: 55 Year
  Sex: Male
  Weight: 110.2241 kg

DRUGS (16)
  1. CELEXA [Concomitant]
  2. DIOVAN [Concomitant]
  3. LOVAZA [Concomitant]
  4. MECLIZINE [Concomitant]
  5. METFORMIN HCL [Concomitant]
  6. ZOCOR [Suspect]
     Dosage: PO
     Route: 048
     Dates: end: 20110217
  7. JANUVIA [Concomitant]
  8. ASPIRIN [Concomitant]
  9. NIACIN [Suspect]
     Dates: end: 20110217
  10. RESTORIL [Concomitant]
  11. INSULIN [Concomitant]
  12. METOPROLOL TARTRATE [Concomitant]
  13. CLOPIDOGREL [Concomitant]
  14. TAB BLINDED THERAPY [Suspect]
     Indication: ACUTE CORONARY SYNDROME
     Dosage: BID, PO
     Route: 048
     Dates: start: 20101217, end: 20110207
  15. SPIRIVA [Concomitant]
  16. SYMBICORT [Concomitant]

REACTIONS (4)
  - ANGINA UNSTABLE [None]
  - BLOOD GLUCOSE INCREASED [None]
  - MYOCARDIAL ISCHAEMIA [None]
  - HEPATIC STEATOSIS [None]
